FAERS Safety Report 4733855-1 (Version None)
Quarter: 2005Q3

REPORT INFORMATION
  Report Type: 
  Country: None (occurrence: None)
  Receive Date: 20050803
  Receipt Date: 20050309
  Transmission Date: 20060218
  Serious: Yes (Hospitalization)
  Sender: FDA-Public Use
  Company Number: US-MERCK-0503USA01994

PATIENT
  Age: 81 Year
  Sex: Female
  Weight: 70 kg

DRUGS (23)
  1. VIOXX [Suspect]
     Indication: ARTHRITIS
     Route: 048
     Dates: start: 20011101, end: 20040820
  2. ASPIRIN [Concomitant]
     Indication: HYPERTENSION
     Route: 065
     Dates: start: 19960901
  3. AMBIEN [Concomitant]
     Indication: INSOMNIA
     Route: 065
  4. PAXIL [Concomitant]
     Indication: DEPRESSION
     Route: 065
     Dates: start: 19960901
  5. HYDRODIURIL [Concomitant]
     Indication: HYPERTENSION
     Route: 048
     Dates: start: 19960901
  6. PRINIVIL [Concomitant]
     Indication: HYPERTENSION
     Route: 048
  7. POTASSIUM CHLORIDE [Concomitant]
     Indication: SUBSTITUTION THERAPY
     Route: 065
  8. CELEBREX [Concomitant]
     Indication: ARTHRITIS
     Route: 065
  9. OMEPRAZOLE [Concomitant]
     Indication: ULCER
     Route: 065
  10. OMEPRAZOLE [Concomitant]
     Indication: REFLUX GASTRITIS
     Route: 065
  11. FLUOXETINE [Concomitant]
     Indication: DEPRESSION
     Route: 065
  12. FLURAZEPAM [Concomitant]
     Indication: INSOMNIA
     Route: 065
  13. ZYRTEC [Concomitant]
     Indication: HYPERSENSITIVITY
     Route: 065
  14. ACETAMINOPHEN AND CODEINE PHOSPHATE [Concomitant]
     Indication: PAIN
     Route: 065
  15. TRAMADOL HYDROCHLORIDE [Concomitant]
     Indication: PAIN
     Route: 065
  16. ULTRACET [Concomitant]
     Indication: PAIN
     Route: 065
  17. PAROXETINE [Concomitant]
     Indication: DEPRESSION
     Route: 065
  18. PROTONIX [Concomitant]
     Indication: GASTRIC DISORDER
     Route: 065
  19. BEXTRA [Concomitant]
     Route: 065
  20. MIRTAZAPINE [Concomitant]
     Indication: DEPRESSION
     Route: 065
  21. NIASPAN [Concomitant]
     Indication: BLOOD CHOLESTEROL INCREASED
     Route: 065
  22. ZESTRIL [Concomitant]
     Indication: HYPERTENSION
     Route: 065
     Dates: start: 19960901
  23. NORVASC [Concomitant]
     Indication: BLOOD PRESSURE
     Route: 065
     Dates: start: 19960901

REACTIONS (2)
  - CARDIAC DISORDER [None]
  - MYOCARDIAL INFARCTION [None]
